FAERS Safety Report 21062367 (Version 3)
Quarter: 2022Q4

REPORT INFORMATION
  Report Type: Spontaneous
  Country: US (occurrence: US)
  Receive Date: 20220711
  Receipt Date: 20221129
  Transmission Date: 20230113
  Serious: Yes (Other)
  Sender: FDA-Public Use
  Company Number: US-JNJFOC-20220715562

PATIENT
  Sex: Female

DRUGS (1)
  1. ELMIRON [Suspect]
     Active Substance: PENTOSAN POLYSULFATE SODIUM
     Indication: Cystitis interstitial
     Route: 048
     Dates: start: 200601, end: 201609

REACTIONS (7)
  - Retinal detachment [Not Recovered/Not Resolved]
  - Maculopathy [Unknown]
  - Psychotic disorder [Unknown]
  - Dry mouth [Unknown]
  - Dry eye [Unknown]
  - Alopecia [Unknown]
  - Drug ineffective [Unknown]
